FAERS Safety Report 12707135 (Version 1)
Quarter: 2016Q3

REPORT INFORMATION
  Report Type: Spontaneous
  Country: US (occurrence: US)
  Receive Date: 20160901
  Receipt Date: 20160901
  Transmission Date: 20161109
  Serious: No
  Sender: FDA-Public Use
  Company Number: US-BAUSCH-BL-2016-003175

PATIENT
  Age: 39 Year
  Sex: Male
  Weight: 61.29 kg

DRUGS (4)
  1. COLAZAL [Suspect]
     Active Substance: BALSALAZIDE DISODIUM
     Indication: IRRITABLE BOWEL SYNDROME
     Route: 048
  2. COLAZAL [Suspect]
     Active Substance: BALSALAZIDE DISODIUM
     Route: 048
  3. COLAZAL [Suspect]
     Active Substance: BALSALAZIDE DISODIUM
     Route: 048
     Dates: start: 201602
  4. PURINETHOL [Concomitant]
     Active Substance: MERCAPTOPURINE
     Indication: CROHN^S DISEASE

REACTIONS (3)
  - Abdominal distension [Not Recovered/Not Resolved]
  - Drug ineffective [Unknown]
  - Irritable bowel syndrome [Not Recovered/Not Resolved]

NARRATIVE: CASE EVENT DATE: 201602
